FAERS Safety Report 7134312-8 (Version None)
Quarter: 2010Q4

REPORT INFORMATION
  Report Type: 
  Country: None (occurrence: None)
  Receive Date: 20101203
  Receipt Date: 20101122
  Transmission Date: 20110411
  Serious: Yes (Death, Other)
  Sender: FDA-Public Use
  Company Number: GB-NOVOPROD-317918

PATIENT
  Sex: Female

DRUGS (1)
  1. NOVOLIN 70/30 [Suspect]
     Indication: OFF LABEL USE

REACTIONS (3)
  - DEATH [None]
  - INTENTIONAL DRUG MISUSE [None]
  - VICTIM OF HOMICIDE [None]
